FAERS Safety Report 15092782 (Version 2)
Quarter: 2018Q3

REPORT INFORMATION
  Report Type: Spontaneous
  Country: DE (occurrence: DE)
  Receive Date: 20180629
  Receipt Date: 20180806
  Transmission Date: 20181010
  Serious: Yes (Congenital Anomaly, Other)
  Sender: FDA-Public Use
  Company Number: PHHY2018DE028821

PATIENT
  Sex: Male

DRUGS (2)
  1. METOPROLOL. [Suspect]
     Active Substance: METOPROLOL
     Indication: FOETAL EXPOSURE DURING PREGNANCY
     Route: 064
  2. ENALAPRIL [Suspect]
     Active Substance: ENALAPRIL
     Indication: FOETAL EXPOSURE DURING PREGNANCY
     Route: 064

REACTIONS (4)
  - Congenital cystic kidney disease [Unknown]
  - Abnormal palmar/plantar creases [Unknown]
  - Foetal exposure during pregnancy [Recovered/Resolved]
  - Renal dysplasia [Unknown]
